FAERS Safety Report 16171545 (Version 3)
Quarter: 2019Q3

REPORT INFORMATION
  Report Type: Report from Study
  Country: JP (occurrence: JP)
  Receive Date: 20190408
  Receipt Date: 20190710
  Transmission Date: 20191004
  Serious: Yes (Hospitalization, Other)
  Sender: FDA-Public Use
  Company Number: JP-GE HEALTHCARE LIFE SCIENCES-2019CSU001816

PATIENT

DRUGS (5)
  1. VIZAMYL [Suspect]
     Active Substance: FLUTEMETAMOL F-18
     Indication: POSITRON EMISSION TOMOGRAM
     Dosage: UNK UNK, SINGLE
     Route: 065
     Dates: start: 20170824, end: 20170824
  2. VIZAMYL [Suspect]
     Active Substance: FLUTEMETAMOL F-18
     Indication: DEMENTIA ALZHEIMER^S TYPE
     Dosage: UNK UNK, SINGLE
     Route: 065
     Dates: start: 20180322, end: 20180322
  3. REMINYL [Concomitant]
     Active Substance: GALANTAMINE
     Indication: COGNITIVE DISORDER
     Dosage: 24 MG, BID
     Route: 048
     Dates: start: 20160423
  4. VIZAMYL [Suspect]
     Active Substance: FLUTEMETAMOL F-18
     Dosage: UNK UNK, SINGLE
     Route: 065
     Dates: start: 20190312, end: 20190312
  5. ADUCANUMAB [Suspect]
     Active Substance: ADUCANUMAB
     Indication: DEMENTIA ALZHEIMER^S TYPE
     Dosage: UNK
     Route: 065
     Dates: start: 20170919, end: 20190305

REACTIONS (2)
  - Cataract [Recovered/Resolved]
  - Lymphoma [Not Recovered/Not Resolved]

NARRATIVE: CASE EVENT DATE: 20190325
